FAERS Safety Report 5655091-7 (Version None)
Quarter: 2008Q1

REPORT INFORMATION
  Report Type: 
  Country: None (occurrence: None)
  Receive Date: 20080307
  Receipt Date: 20071203
  Transmission Date: 20080703
  Serious: No
  Sender: FDA-Public Use
  Company Number: A0697004A

PATIENT
  Age: 62 Year
  Sex: Male

DRUGS (6)
  1. REQUIP [Suspect]
     Indication: RESTLESS LEGS SYNDROME
     Dosage: 2MG PER DAY
     Route: 048
     Dates: start: 20070401
  2. DEPAKOTE [Concomitant]
  3. LUNESTA [Concomitant]
  4. SYNTHROID [Concomitant]
     Indication: DEPRESSION
  5. CYTOMEL [Concomitant]
     Indication: DEPRESSION
  6. DOXAZOSIN MESYLATE [Concomitant]

REACTIONS (3)
  - DEPRESSED MOOD [None]
  - INSOMNIA [None]
  - THERAPEUTIC RESPONSE UNEXPECTED [None]
